FAERS Safety Report 4511931-6 (Version None)
Quarter: 2004Q4

REPORT INFORMATION
  Report Type: 
  Country: None (occurrence: None)
  Receive Date: 20041123
  Receipt Date: 20041109
  Transmission Date: 20050328
  Serious: Yes (Hospitalization)
  Sender: FDA-Public Use
  Company Number: 2004-BP-11632RO

PATIENT
  Age: 59 Year
  Sex: Female

DRUGS (5)
  1. METHOTREXATE [Suspect]
     Indication: RHEUMATOID ARTHRITIS
  2. ETANERCEPT (ETANERCEPT) [Suspect]
     Indication: RHEUMATOID ARTHRITIS
  3. NIFEDIPINE [Concomitant]
  4. LANSOPRAZOLE [Concomitant]
  5. PAMIDRONATE DISODIUM [Concomitant]

REACTIONS (27)
  - ACTINOMYCOSIS [None]
  - ARTHRALGIA [None]
  - BODY TEMPERATURE INCREASED [None]
  - BURSA DISORDER [None]
  - CARDIAC MURMUR [None]
  - CULTURE WOUND POSITIVE [None]
  - ERYTHEMA [None]
  - EXCESSIVE GRANULATION TISSUE [None]
  - EXCORIATION [None]
  - FALL [None]
  - INDURATION [None]
  - JOINT RANGE OF MOTION DECREASED [None]
  - JOINT SWELLING [None]
  - LOBAR PNEUMONIA [None]
  - MUSCLE ABSCESS [None]
  - MUSCLE CONTRACTURE [None]
  - NECROSIS [None]
  - NUCLEAR MAGNETIC RESONANCE IMAGING ABNORMAL [None]
  - PURULENT SYNOVITIS [None]
  - RHEUMATOID ARTHRITIS [None]
  - SKIN WARM [None]
  - SWELLING [None]
  - SYNOVIAL CYST [None]
  - SYNOVITIS [None]
  - TENDERNESS [None]
  - TENOSYNOVITIS [None]
  - WHITE BLOOD CELL COUNT INCREASED [None]
